FAERS Safety Report 9107028 (Version 1)
Quarter: 2013Q1

REPORT INFORMATION
  Report Type: Spontaneous
  Country: GB (occurrence: GB)
  Receive Date: 20130221
  Receipt Date: 20130221
  Transmission Date: 20140127
  Serious: Yes (Other)
  Sender: FDA-Public Use
  Company Number: GB-ELI_LILLY_AND_COMPANY-GB201302003648

PATIENT
  Age: 80 Year
  Sex: Male

DRUGS (2)
  1. HUMALOG 25% LISPRO, 75% NPL [Suspect]
     Indication: TYPE 2 DIABETES MELLITUS
     Dosage: 12 U, EACH MORNING
     Dates: start: 20130205, end: 20130207
  2. HUMALOG 25% LISPRO, 75% NPL [Suspect]
     Dosage: 16 U, EACH MORNING
     Dates: start: 20130208

REACTIONS (1)
  - Blood glucose increased [Unknown]
